FAERS Safety Report 7334705-X (Version None)
Quarter: 2011Q1

REPORT INFORMATION
  Report Type: 
  Country: None (occurrence: None)
  Receive Date: 20110307
  Receipt Date: 20110301
  Transmission Date: 20110831
  Serious: Yes (Death, Hospitalization)
  Sender: FDA-Public Use
  Company Number: NO-PFIZER INC-2011044074

PATIENT
  Age: 74 Year
  Sex: Female

DRUGS (1)
  1. SUTENT [Suspect]
     Indication: METASTATIC RENAL CELL CARCINOMA
     Dosage: 37.5 MG, 1X/DAY
     Route: 048
     Dates: start: 20110117, end: 20110204

REACTIONS (6)
  - PULMONARY EMBOLISM [None]
  - PANCYTOPENIA [None]
  - ENTERITIS [None]
  - DEATH [None]
  - SEPSIS [None]
  - IMPAIRED GASTRIC EMPTYING [None]
